FAERS Safety Report 5294819-5 (Version None)
Quarter: 2007Q2

REPORT INFORMATION
  Report Type: 
  Country: None (occurrence: None)
  Receive Date: 20070412
  Receipt Date: 20070403
  Transmission Date: 20071010
  Serious: Yes (Hospitalization)
  Sender: FDA-Public Use
  Company Number: SE-AVENTIS-200712070GDDC

PATIENT
  Age: 76 Year
  Sex: Male

DRUGS (8)
  1. TAXOTERE [Suspect]
     Indication: PROSTATE CANCER
     Route: 042
     Dates: start: 20070129, end: 20070129
  2. DOLCONTIN                          /00036302/ [Concomitant]
  3. SIMVASTATIN [Concomitant]
  4. ENALAPRIL MALEATE [Concomitant]
  5. SALURES [Concomitant]
  6. TEMESTA                            /00273201/ [Concomitant]
  7. ZOLPIDEM TARTRATE [Concomitant]
  8. PARACETAMOL [Concomitant]

REACTIONS (3)
  - ASTHENIA [None]
  - FALL [None]
  - FEMORAL NECK FRACTURE [None]
